FAERS Safety Report 5735930-1 (Version None)
Quarter: 2008Q2

REPORT INFORMATION
  Report Type: 
  Country: None (occurrence: None)
  Receive Date: 20080509
  Receipt Date: 20080429
  Transmission Date: 20081010
  Serious: Yes (Other)
  Sender: FDA-Public Use
  Company Number: CHPA2008US07594

PATIENT
  Age: 72 Year
  Sex: Female

DRUGS (2)
  1. MAALOX ANTACID/ANTIGAS RS LIQ SMTHCHERRY (MAGNESIUM HYDROXIDE, ALUMINI [Suspect]
     Indication: DYSPEPSIA
     Dosage: SINCE 5 YEARS, ORAL
     Route: 048
  2. DRUG THERAPY NOS (DRUG THERAPY NOS) [Concomitant]

REACTIONS (3)
  - GASTRIC ULCER [None]
  - GLAUCOMA [None]
  - HEART RATE IRREGULAR [None]
